FAERS Safety Report 7303777-0 (Version None)
Quarter: 2011Q1

REPORT INFORMATION
  Report Type: 
  Country: None (occurrence: None)
  Receive Date: 20110221
  Receipt Date: 20110216
  Transmission Date: 20110831
  Serious: Yes (Other)
  Sender: FDA-Public Use
  Company Number: FR-BRISTOL-MYERS SQUIBB COMPANY-15558166

PATIENT
  Age: 50 Year
  Sex: Female

DRUGS (2)
  1. CITALOPRAM [Suspect]
  2. ABILIFY [Suspect]
     Dates: start: 20110201

REACTIONS (1)
  - MANIA [None]
